FAERS Safety Report 10404174 (Version 1)
Quarter: 2014Q1

REPORT INFORMATION
  Report Type: Spontaneous
  Country: US (occurrence: None)
  Receive Date: 20131226
  Receipt Date: 20131226
  Transmission Date: 20141002
  Serious: Yes (Hospitalization)
  Sender: FDA-Public Use
  Company Number: PHEH2012US021625

PATIENT
  Age: 85 Year
  Sex: Male

DRUGS (1)
  1. ZOMETA (ZOLEDRONATE) [Suspect]
     Indication: HEPATIC CANCER
     Dosage: UNK,  4WEKS, INTRAVENOUS
     Route: 042
     Dates: start: 20120112

REACTIONS (1)
  - Arthralgia [None]
